FAERS Safety Report 7797598-2 (Version None)
Quarter: 2011Q4

REPORT INFORMATION
  Report Type: 
  Country: None (occurrence: None)
  Receive Date: 20111005
  Receipt Date: 20110929
  Transmission Date: 20120403
  Serious: Yes (Death, Other)
  Sender: FDA-Public Use
  Company Number: US-TEVA-297863USA

PATIENT
  Sex: Male

DRUGS (6)
  1. CLOZAPINE [Suspect]
     Indication: SCHIZOPHRENIA, PARANOID TYPE
     Dosage: 125 MILLIGRAM; QHS
     Route: 048
  2. RISPERIDONE [Concomitant]
     Dosage: 4 MILLIGRAM; QHS
  3. BENZTROPINE MESYLATE [Concomitant]
     Dosage: 3 MILLIGRAM; QHS
  4. LEVOTHYROXINE [Concomitant]
     Dosage: 125 MICROGRAM; QD
  5. DEPAKOTE [Concomitant]
     Dosage: 1500 MILLIGRAM; QHS
  6. OXYBUTYNIN [Concomitant]
     Dosage: 10 MILLIGRAM; QD

REACTIONS (2)
  - CARDIAC DISORDER [None]
  - DEATH [None]
